FAERS Safety Report 16810523 (Version 1)
Quarter: 2019Q3

REPORT INFORMATION
  Report Type: Report from Study
  Country: US (occurrence: US)
  Receive Date: 20190916
  Receipt Date: 20190916
  Transmission Date: 20191005
  Serious: Yes (Other)
  Sender: FDA-Public Use
  Company Number: US-JNJFOC-20190911118

PATIENT
  Sex: Female

DRUGS (13)
  1. LUTEIN                             /01638501/ [Concomitant]
     Active Substance: LUTEIN
  2. IMBRUVICA [Suspect]
     Active Substance: IBRUTINIB
     Indication: MANTLE CELL LYMPHOMA
     Dosage: 560 MG, QD
     Route: 048
     Dates: start: 20180419
  3. FLONASE [Concomitant]
     Active Substance: FLUTICASONE PROPIONATE
  4. MELOXICAM. [Concomitant]
     Active Substance: MELOXICAM
  5. IMBRUVICA [Suspect]
     Active Substance: IBRUTINIB
     Indication: MANTLE CELL LYMPHOMA
     Dosage: 560 MG, QD
     Route: 048
     Dates: start: 20171220, end: 20180418
  6. APAP [Concomitant]
     Active Substance: ACETAMINOPHEN
  7. FAMOTIDINE. [Concomitant]
     Active Substance: FAMOTIDINE
  8. MULTIVITAMINS                      /00116001/ [Concomitant]
     Active Substance: VITAMINS
  9. IMBRUVICA [Suspect]
     Active Substance: IBRUTINIB
     Dosage: 560 MG, QD
     Route: 048
     Dates: start: 20180419
  10. VITAMIN D                          /00107901/ [Concomitant]
     Active Substance: ERGOCALCIFEROL
  11. DOCUSATE [Concomitant]
     Active Substance: DOCUSATE
  12. VITAMIN C [Concomitant]
     Active Substance: ASCORBIC ACID
  13. CALCIUM                            /00060701/ [Concomitant]
     Active Substance: CALCIUM

REACTIONS (2)
  - Deafness [Unknown]
  - Respiratory tract infection [Unknown]
